FAERS Safety Report 9798791 (Version 2)
Quarter: 2014Q1

REPORT INFORMATION
  Report Type: Spontaneous
  Country: US (occurrence: US)
  Receive Date: 20140106
  Receipt Date: 20140106
  Transmission Date: 20141002
  Serious: No
  Sender: FDA-Public Use
  Company Number: US-GILEAD-2010-0029609

PATIENT
  Sex: Female

DRUGS (8)
  1. LETAIRIS [Suspect]
     Indication: PULMONARY ARTERIAL HYPERTENSION
     Route: 048
     Dates: start: 20100219
  2. LETAIRIS [Suspect]
     Route: 048
     Dates: start: 200809
  3. REVATIO [Concomitant]
  4. FLOLAN [Concomitant]
  5. LASIX [Concomitant]
  6. COUMADIN [Concomitant]
  7. URSODIOL [Concomitant]
  8. POTASSIUM [Concomitant]

REACTIONS (1)
  - Transaminases increased [Unknown]
